FAERS Safety Report 7582330-8 (Version None)
Quarter: 2011Q2

REPORT INFORMATION
  Report Type: 
  Country: None (occurrence: None)
  Receive Date: 20110527
  Receipt Date: 20101025
  Transmission Date: 20111010
  Serious: Yes (Hospitalization, Other)
  Sender: FDA-Public Use
  Company Number: US200906005703

PATIENT
  Age: 60 Year
  Sex: Male
  Weight: 122.4 kg

DRUGS (8)
  1. GLIPIZIDE [Concomitant]
  2. METFORMIN HCL [Concomitant]
  3. VYTORIN [Concomitant]
  4. LISINOPRIL [Concomitant]
  5. ASPIRIN [Concomitant]
  6. BYETTA [Suspect]
     Dosage: 5 UG, 2/D, 10 UG, 2/D, SUBCUTANEOUS
     Route: 058
     Dates: end: 20080507
  7. BYETTA [Suspect]
     Dosage: 5 UG, 2/D, 10 UG, 2/D, SUBCUTANEOUS
     Route: 058
     Dates: start: 20060921
  8. EXENATIDE PEN, DISPOSABLE DEVICE (EXENATIDE PEN) PEN, DISPOSABLE [Concomitant]

REACTIONS (3)
  - PANCREATITIS ACUTE [None]
  - DEHYDRATION [None]
  - ACUTE PRERENAL FAILURE [None]
